FAERS Safety Report 16849314 (Version 2)
Quarter: 2020Q3

REPORT INFORMATION
  Report Type: Spontaneous
  Country: US (occurrence: US)
  Receive Date: 20190925
  Receipt Date: 20200915
  Transmission Date: 20201102
  Serious: Yes (Hospitalization, Other)
  Sender: FDA-Public Use
  Company Number: US-SUN PHARMACEUTICAL INDUSTRIES LTD-2019R1-221144

PATIENT
  Sex: Male

DRUGS (5)
  1. DESMOPRESSIN [Interacting]
     Active Substance: DESMOPRESSIN
     Indication: URINARY INCONTINENCE
  2. CLOZAPINE. [Concomitant]
     Active Substance: CLOZAPINE
     Dosage: 400 MILLIGRAM, EVERY BEDTIME
     Route: 048
  3. MELOXICAM. [Suspect]
     Active Substance: MELOXICAM
     Indication: ARTHRALGIA
     Dosage: 15 MILLIGRAM, DAILY
     Route: 048
  4. DESMOPRESSIN [Suspect]
     Active Substance: DESMOPRESSIN
     Indication: BLOOD ANTIDIURETIC HORMONE INCREASED
     Dosage: 0.2 MILLIGRAM, EVERY BEDTIME
     Route: 048
  5. CLOZAPINE. [Concomitant]
     Active Substance: CLOZAPINE
     Indication: SCHIZOPHRENIA
     Dosage: 225 MILLIGRAM, EVERY MORNING
     Route: 048

REACTIONS (3)
  - Hyponatraemia [Unknown]
  - Drug interaction [Unknown]
  - Seizure [Recovering/Resolving]
